FAERS Safety Report 15745613 (Version 6)
Quarter: 2019Q2

REPORT INFORMATION
  Report Type: Report from Study
  Country: US (occurrence: US)
  Receive Date: 20181220
  Receipt Date: 20190516
  Transmission Date: 20190711
  Serious: Yes (Hospitalization, Other)
  Sender: FDA-Public Use
  Company Number: US-TAIHO ONCOLOGY  INC-EU-2018-02163

PATIENT
  Age: 75 Year
  Sex: Female
  Weight: 61.29 kg

DRUGS (10)
  1. LEVOTHYROXIN [Concomitant]
     Active Substance: LEVOTHYROXINE
     Route: 048
     Dates: start: 20181015
  2. BYSTOLIC [Concomitant]
     Active Substance: NEBIVOLOL HYDROCHLORIDE
     Indication: PALPITATIONS
     Route: 048
     Dates: start: 20181015
  3. LONSURF [Suspect]
     Active Substance: TIPIRACIL HYDROCHLORIDE\TRIFLURIDINE
     Indication: COLON CANCER
     Dosage: CURRENT CYCLE UNKNOWN STARTED ON 25/FEB/2019.
     Route: 048
     Dates: start: 20181017
  4. ZOFRAN [Concomitant]
     Active Substance: ONDANSETRON HYDROCHLORIDE
     Route: 048
     Dates: start: 20181112
  5. BENEFIBER [Concomitant]
     Active Substance: STARCH, WHEAT
     Dosage: NI
  6. LEVOTHYROXIN [Concomitant]
     Active Substance: LEVOTHYROXINE
  7. AMLODIPINE [Concomitant]
     Active Substance: AMLODIPINE BESYLATE
     Route: 048
     Dates: start: 20181015
  8. ATORVASTATIN [Concomitant]
     Active Substance: ATORVASTATIN
     Dosage: QOD
     Route: 048
     Dates: start: 20181015
  9. TYLENOL [Concomitant]
     Active Substance: ACETAMINOPHEN
     Dosage: NI
  10. LONSURF [Suspect]
     Active Substance: TIPIRACIL HYDROCHLORIDE\TRIFLURIDINE
     Indication: COLON CANCER METASTATIC

REACTIONS (17)
  - Platelet count decreased [Recovered/Resolved]
  - Hypotension [Not Recovered/Not Resolved]
  - Weight decreased [Unknown]
  - Haemoglobin decreased [Recovered/Resolved]
  - Memory impairment [Unknown]
  - Diarrhoea [Not Recovered/Not Resolved]
  - White blood cell count decreased [Recovered/Resolved]
  - Rectal haemorrhage [Recovering/Resolving]
  - Dehydration [Not Recovered/Not Resolved]
  - Dizziness postural [Unknown]
  - Vaginal haemorrhage [Not Recovered/Not Resolved]
  - Malaise [Not Recovered/Not Resolved]
  - Alopecia [Unknown]
  - Decreased appetite [Not Recovered/Not Resolved]
  - Stomatitis [Not Recovered/Not Resolved]
  - Nausea [Not Recovered/Not Resolved]
  - Disease progression [Unknown]

NARRATIVE: CASE EVENT DATE: 2018
